FAERS Safety Report 12355038 (Version 1)
Quarter: 2016Q2

REPORT INFORMATION
  Report Type: Spontaneous
  Country: US (occurrence: US)
  Receive Date: 20160511
  Receipt Date: 20160511
  Transmission Date: 20160815
  Serious: No
  Sender: FDA-Public Use
  Company Number: US-ACTAVIS-2015-12657

PATIENT
  Age: 2 Year
  Sex: Female

DRUGS (1)
  1. IBUPROFEN OTC DYE FREE BERRY (AMALLC) [Suspect]
     Active Substance: IBUPROFEN
     Indication: PYREXIA
     Dosage: 5 ML, SINGLE
     Route: 065
     Dates: start: 20150607, end: 20150607

REACTIONS (2)
  - Diarrhoea [Recovered/Resolved]
  - Liquid product physical issue [None]
